FAERS Safety Report 5396639-X (Version None)
Quarter: 2007Q3

REPORT INFORMATION
  Report Type: 
  Country: None (occurrence: None)
  Receive Date: 20070725
  Receipt Date: 20070719
  Transmission Date: 20080115
  Serious: Yes (Disabling)
  Sender: FDA-Public Use
  Company Number: A0665270A

PATIENT
  Sex: Male

DRUGS (5)
  1. BUPROPION HYDROCHLORIDE [Suspect]
     Indication: DEPRESSION
     Dosage: 75MG TWICE PER DAY
     Route: 048
     Dates: start: 20051214
  2. RISPERDAL [Suspect]
     Indication: ANXIETY
     Dosage: 1.5MG TWICE PER DAY
     Route: 048
     Dates: start: 20050121
  3. ZOLOFT [Concomitant]
  4. TEGRETOL [Concomitant]
  5. RISPERDAL [Concomitant]

REACTIONS (3)
  - AMNESIA [None]
  - DISTURBANCE IN ATTENTION [None]
  - WEIGHT INCREASED [None]
